FAERS Safety Report 4950147-6 (Version None)
Quarter: 2006Q1

REPORT INFORMATION
  Report Type: 
  Country: None (occurrence: None)
  Receive Date: 20060315
  Receipt Date: 20060302
  Transmission Date: 20060701
  Serious: Yes (Hospitalization)
  Sender: FDA-Public Use
  Company Number: 200610225BFR

PATIENT
  Age: 74 Year
  Sex: Male

DRUGS (2)
  1. CIPROFLAXACIN [Suspect]
     Indication: NASOPHARYNGITIS
     Dosage: 500 MG, BID, ORAL
     Route: 048
     Dates: start: 20030101
  2. SINTROM [Concomitant]

REACTIONS (8)
  - ARRHYTHMIA [None]
  - ATRIAL FIBRILLATION [None]
  - CARDIAC FAILURE [None]
  - DEAFNESS UNILATERAL [None]
  - GLUCOSE-6-PHOSPHATE DEHYDROGENASE DEFICIENCY [None]
  - HAEMOLYTIC ANAEMIA [None]
  - HYPOXIA [None]
  - SHOCK [None]
